FAERS Safety Report 23949927 (Version 3)
Quarter: 2024Q2

REPORT INFORMATION
  Report Type: Report from Study
  Country: US (occurrence: US)
  Receive Date: 20240607
  Receipt Date: 20240625
  Transmission Date: 20240716
  Serious: Yes (Other)
  Sender: FDA-Public Use
  Company Number: US-MYLANLABS-2024M1048247

PATIENT
  Age: 27 Year
  Sex: Female

DRUGS (1)
  1. AMNESTEEM [Suspect]
     Active Substance: ISOTRETINOIN
     Indication: Product used for unknown indication
     Dosage: 80 MILLIGRAM, QD
     Route: 065
     Dates: start: 20230616, end: 20240315

REACTIONS (2)
  - Maternal exposure during pregnancy [Unknown]
  - Human chorionic gonadotropin decreased [Unknown]

NARRATIVE: CASE EVENT DATE: 20240515
